FAERS Safety Report 8009564-2 (Version None)
Quarter: 2011Q4

REPORT INFORMATION
  Report Type: 
  Country: None (occurrence: None)
  Receive Date: 20111227
  Receipt Date: 20111221
  Transmission Date: 20120403
  Serious: Yes (Hospitalization)
  Sender: FDA-Public Use
  Company Number: US-AMGEN-USASP2011055357

PATIENT
  Age: 75 Year
  Sex: Female

DRUGS (1)
  1. ENBREL [Suspect]
     Indication: PSORIATIC ARTHROPATHY
     Dosage: 50 MG, QWK
     Dates: start: 20101201, end: 20111101

REACTIONS (5)
  - JOINT DESTRUCTION [None]
  - KNEE ARTHROPLASTY [None]
  - CONTUSION [None]
  - REHABILITATION THERAPY [None]
  - SCAB [None]
